FAERS Safety Report 19746186 (Version 5)
Quarter: 2021Q3

REPORT INFORMATION
  Report Type: Report from Study
  Country: GB (occurrence: GB)
  Receive Date: 20210826
  Receipt Date: 20210923
  Transmission Date: 20211014
  Serious: Yes (Death, Hospitalization)
  Sender: FDA-Public Use
  Company Number: GB-CELLTRION INC.-2019GB018432

PATIENT

DRUGS (144)
  1. LETROZOLE. [Suspect]
     Active Substance: LETROZOLE
     Indication: BREAST CANCER
  2. TAXOTERE [Suspect]
     Active Substance: DOCETAXEL
     Indication: BREAST CANCER METASTATIC
     Dosage: 148 MILLIGRAM, Q3WK
     Route: 042
     Dates: start: 20171106, end: 20180209
  3. TAXOTERE [Suspect]
     Active Substance: DOCETAXEL
     Dosage: UNK
     Route: 065
  4. AMITRIPTYLINE HYDROCHLORIDE. [Concomitant]
     Active Substance: AMITRIPTYLINE HYDROCHLORIDE
     Indication: NEUROPATHY PERIPHERAL
     Dosage: UNK (DOSAGE FORM: 245)
     Route: 048
     Dates: start: 20180316
  5. CAPECITABINE. [Concomitant]
     Active Substance: CAPECITABINE
     Indication: GASTRIC CANCER
     Dosage: 1000 MG
     Route: 048
     Dates: start: 20180611, end: 20180731
  6. CHLORAMPHENICOL [Concomitant]
     Active Substance: CHLORAMPHENICOL
     Indication: EYE INFECTION
     Dosage: DROP (1/12 MILLILITRE), QD
     Route: 047
     Dates: start: 20171129, end: 20171222
  7. FLUCLOXACILLIN [Concomitant]
     Active Substance: FLUCLOXACILLIN
     Dosage: UNK UNK, QD
     Route: 048
     Dates: start: 20190222
  8. LAXIDO [Concomitant]
     Active Substance: POLYETHYLENE GLYCOL 3350\POTASSIUM CHLORIDE\SODIUM BICARBONATE\SODIUM CHLORIDE
     Dosage: UNK
     Route: 048
  9. LEVOMEPROMAZINE [Concomitant]
     Active Substance: LEVOMEPROMAZINE
     Indication: ILLNESS
     Dosage: 6.25 MILLIGRAM (0.25)
     Route: 058
     Dates: start: 20191028
  10. LOPERAMIDE [Concomitant]
     Active Substance: LOPERAMIDE
     Indication: DIARRHOEA
     Dosage: 2 MILLIGRAM
     Route: 048
     Dates: start: 20180611
  11. ONDANSETRON [Concomitant]
     Active Substance: ONDANSETRON
     Dosage: 8 MG
     Route: 042
     Dates: start: 20180611, end: 20180611
  12. PARACETAMOL [Concomitant]
     Active Substance: ACETAMINOPHEN
     Dosage: 1 G
     Route: 048
  13. RAMIPRIL. [Concomitant]
     Active Substance: RAMIPRIL
     Indication: PRODUCT USED FOR UNKNOWN INDICATION
     Dosage: 2.5 MILLIGRAM, AS NECESSARY
     Route: 048
  14. SENNA [Concomitant]
     Active Substance: SENNA LEAF\SENNOSIDES\SENNOSIDES A AND B
     Dosage: 7.5 MG
     Route: 048
     Dates: start: 20190919
  15. SENNA [Concomitant]
     Active Substance: SENNA LEAF\SENNOSIDES\SENNOSIDES A AND B
     Indication: CONSTIPATION
     Dosage: 7.5 MG
     Route: 048
     Dates: start: 20190919
  16. TRASTUZUMAB. [Suspect]
     Active Substance: TRASTUZUMAB
     Dosage: 441 MILLIGRAM, Q3WK (DOSE FORM: 230, 293)
     Route: 042
     Dates: start: 20180404, end: 20191218
  17. FEMARA [Suspect]
     Active Substance: LETROZOLE
     Indication: BREAST CANCER METASTATIC
     Dosage: 20 MILLIGRAM, QD
     Route: 048
     Dates: start: 20180209, end: 20180608
  18. FEMARA [Suspect]
     Active Substance: LETROZOLE
     Indication: BREAST CANCER
     Dosage: UNK
  19. PERTUZUMAB. [Suspect]
     Active Substance: PERTUZUMAB
     Dosage: 420 MILLIGRAM, Q3WK (DOSE FORM: 230)
     Route: 042
     Dates: start: 20171206
  20. PERTUZUMAB. [Suspect]
     Active Substance: PERTUZUMAB
     Dosage: 420 MG, Q3W, (DOSE FORM: 230) (CUMULATIVE DOSE TO FIRST REACTION: 5339.1665 MG)
     Route: 042
     Dates: start: 20171206
  21. CAPECITABINE. [Concomitant]
     Active Substance: CAPECITABINE
     Dosage: UNK
  22. CAPECITABINE. [Concomitant]
     Active Substance: CAPECITABINE
     Dosage: 1000 MG (DOSE FORM: 245)
     Route: 048
  23. CHLORHEXIDINE [Concomitant]
     Active Substance: CHLORHEXIDINE
     Dosage: 10 UNK
     Route: 048
  24. OMEPRAZOLE. [Concomitant]
     Active Substance: OMEPRAZOLE
     Indication: GASTROINTESTINAL DISORDER PROPHYLAXIS
     Dosage: 40 MILLIGRAM
     Route: 048
     Dates: start: 20191028
  25. ONDANSETRON [Concomitant]
     Active Substance: ONDANSETRON
     Indication: PRODUCT USED FOR UNKNOWN INDICATION
     Dosage: 8 MILLIGRAM, QD
     Route: 042
     Dates: start: 20180611, end: 20180611
  26. OXALIPLATIN. [Concomitant]
     Active Substance: OXALIPLATIN
     Indication: GASTRIC CANCER
     Dosage: 250 MG
     Route: 042
     Dates: start: 20180611, end: 20180731
  27. RAMIPRIL. [Concomitant]
     Active Substance: RAMIPRIL
     Dosage: 2.5 MILLIGRAM, PRN (DOSAGE FORM: 245)
     Route: 048
  28. SENNA [Concomitant]
     Active Substance: SENNA LEAF\SENNOSIDES\SENNOSIDES A AND B
     Indication: CONSTIPATION
     Dosage: 7.5 MG
     Route: 048
     Dates: start: 20190219
  29. SODIUM CROMOGLYCATE [Concomitant]
     Active Substance: CROMOLYN SODIUM
     Indication: EYE PAIN
     Dosage: 1 [DRP], QD (EYE DROP)
     Route: 047
  30. DOCETAXEL. [Suspect]
     Active Substance: DOCETAXEL
     Indication: BREAST CANCER
  31. DOCETAXEL. [Suspect]
     Active Substance: DOCETAXEL
     Indication: BREAST CANCER METASTATIC
     Dosage: 148 MG EVERY 3 WEEKS
     Route: 042
     Dates: start: 20171106, end: 20180209
  32. FILGRASTIM [Suspect]
     Active Substance: FILGRASTIM
     Dosage: 480 UG
     Route: 058
     Dates: start: 20171229, end: 20180102
  33. FILGRASTIM [Suspect]
     Active Substance: FILGRASTIM
     Dosage: 480 UG, QD (CUMULATIVE DOSE TO FIRST REACTION: 6240 UG)
     Route: 058
     Dates: start: 20180120, end: 20180124
  34. PERJETA [Suspect]
     Active Substance: PERTUZUMAB
     Indication: BREAST CANCER METASTATIC
     Dosage: 840 MG, Q3W
     Route: 042
     Dates: start: 20171107, end: 20171107
  35. PERJETA [Suspect]
     Active Substance: PERTUZUMAB
     Dosage: 420 MG, EVERY 3 WEEKS (ONGOING)
     Route: 042
     Dates: start: 20171206
  36. PERTUZUMAB. [Suspect]
     Active Substance: PERTUZUMAB
     Indication: BREAST CANCER
     Dosage: 840 MG, Q3W (DOSE FORM: 230) (CUMULATIVE DOSE TO FIRST REACTION: 11838.333 MG)
     Route: 042
     Dates: start: 20171107, end: 20171107
  37. CIPROFLOXACIN. [Concomitant]
     Active Substance: CIPROFLOXACIN
     Dosage: 500 MG, (0.5 DAY)
     Route: 048
     Dates: start: 20191028, end: 20191031
  38. FLUOROURACIL. [Concomitant]
     Active Substance: FLUOROURACIL
     Indication: GASTRIC CANCER
     Dosage: 2050 MILLIGRAM, QWK
     Route: 042
     Dates: start: 20180925, end: 20181218
  39. FLUOROURACIL. [Concomitant]
     Active Substance: FLUOROURACIL
     Dosage: 2550 MG, QW (DOSE FORM: 245)
     Route: 042
     Dates: start: 20180731, end: 20180925
  40. FLUOROURACIL. [Concomitant]
     Active Substance: FLUOROURACIL
     Dosage: 2050 MG, QW (DOSE FORM: 245)
     Route: 042
     Dates: start: 20180925, end: 20181218
  41. LANSOPRAZOLE. [Concomitant]
     Active Substance: LANSOPRAZOLE
     Indication: GASTRIC ULCER
     Dosage: 30 MILLIGRAM (DOSE FORM: 245)
     Route: 048
     Dates: start: 20180209
  42. LAXIDO [Concomitant]
     Active Substance: POLYETHYLENE GLYCOL 3350\POTASSIUM CHLORIDE\SODIUM BICARBONATE\SODIUM CHLORIDE
     Indication: CONSTIPATION
     Dosage: UNK
     Route: 048
  43. LORAZEPAM. [Concomitant]
     Active Substance: LORAZEPAM
     Indication: PRODUCT USED FOR UNKNOWN INDICATION
     Dosage: 1 MILLIGRAM, AS NECESSARY (DOSE FORM: 245)
     Route: 048
  44. LORAZEPAM. [Concomitant]
     Active Substance: LORAZEPAM
     Dosage: 1 MG, PRN (DOSE FORM: 245)
     Route: 048
  45. METOCLOPRAMIDE. [Concomitant]
     Active Substance: METOCLOPRAMIDE
     Indication: PREMEDICATION
     Dosage: 10 MILLIGRAM (DOSE FORM: 245)
     Route: 042
     Dates: start: 20171228, end: 20171228
  46. PARACETAMOL [Concomitant]
     Active Substance: ACETAMINOPHEN
     Indication: ANALGESIC THERAPY
     Dosage: 1 GRAM
     Route: 042
     Dates: start: 20180830, end: 20180830
  47. PARACETAMOL [Concomitant]
     Active Substance: ACETAMINOPHEN
     Dosage: 1 G
     Route: 042
     Dates: start: 20190830, end: 20190830
  48. PARACETAMOL [Concomitant]
     Active Substance: ACETAMINOPHEN
     Dosage: 1G
     Route: 042
     Dates: start: 20180830, end: 20180830
  49. FEMARA [Suspect]
     Active Substance: LETROZOLE
     Dosage: 20 MILLIGRAM, DAILY (CUMULATIVE DOSE TO FIRST REACTION: 4039.1667 MG)
     Route: 048
     Dates: start: 20180209, end: 20180608
  50. FILGRASTIM [Suspect]
     Active Substance: FILGRASTIM
     Dosage: 480 MICROGRAM (DOSE FORM: 231)
     Route: 058
     Dates: start: 20171229, end: 20180102
  51. ACICLOVIR [Concomitant]
     Active Substance: ACYCLOVIR
     Dosage: UNK
     Route: 061
     Dates: start: 20171222
  52. AMITRIPTYLINE [Concomitant]
     Active Substance: AMITRIPTYLINE
     Indication: NEUROPATHY PERIPHERAL
     Dosage: UNK
     Route: 048
     Dates: start: 20180316
  53. CHLORHEXIDINE [Concomitant]
     Active Substance: CHLORHEXIDINE
     Dosage: 10 ML, 10 UNK
     Route: 048
     Dates: start: 20180611
  54. DEXAMETHASONE. [Concomitant]
     Active Substance: DEXAMETHASONE
     Dosage: 8 MG, QD (CUMULATIVE DOSE TO FIRST REACTION: 1791.6666 MG)
     Route: 048
     Dates: start: 20180118, end: 20180121
  55. LANSOPRAZOLE. [Concomitant]
     Active Substance: LANSOPRAZOLE
     Dosage: UNK
  56. METOCLOPRAMIDE. [Concomitant]
     Active Substance: METOCLOPRAMIDE
     Dosage: 10 MG
     Route: 048
     Dates: start: 20180611
  57. METOCLOPRAMIDE. [Concomitant]
     Active Substance: METOCLOPRAMIDE
     Indication: NAUSEA
     Dosage: 10 MILLIGRAM (DOSE FORM: 245)
     Route: 042
     Dates: start: 20171206, end: 20171206
  58. ONDANSETRON [Concomitant]
     Active Substance: ONDANSETRON
     Dosage: 4 MG
     Route: 042
     Dates: start: 20180830, end: 20180830
  59. PARACETAMOL [Concomitant]
     Active Substance: ACETAMINOPHEN
     Indication: PAIN
     Dosage: 1 G, AS NECESSARY
     Route: 048
     Dates: start: 20190219
  60. PARACETAMOL [Concomitant]
     Active Substance: ACETAMINOPHEN
     Indication: PAIN
     Dosage: 1 G
     Route: 048
  61. PARACETAMOL [Concomitant]
     Active Substance: ACETAMINOPHEN
     Indication: ANALGESIC THERAPY
     Dosage: UNK, PRN
     Route: 048
     Dates: start: 20190219
  62. PARACETAMOL [Concomitant]
     Active Substance: ACETAMINOPHEN
     Dosage: 1 GRAM
     Route: 048
     Dates: start: 20190219
  63. RAMIPRIL. [Concomitant]
     Active Substance: RAMIPRIL
     Dosage: 2.5 MG, QD (DOSAGE FORM: 245)
     Route: 048
  64. SODIUM CROMOGLYCATE [Concomitant]
     Active Substance: CROMOLYN SODIUM
     Dosage: UNK (DOSAGE FORM: 71)
     Route: 047
  65. ZOPICLONE [Concomitant]
     Active Substance: ZOPICLONE
     Indication: SEDATION
     Dosage: 7.5 MG, QD
     Route: 048
  66. DOCETAXEL. [Suspect]
     Active Substance: DOCETAXEL
     Indication: BREAST CANCER METASTATIC
     Dosage: 148 MILLIGRAM, Q3W
     Route: 042
     Dates: start: 20171106, end: 20180209
  67. FEMARA [Suspect]
     Active Substance: LETROZOLE
     Dosage: UNK
     Route: 065
  68. FILGRASTIM [Suspect]
     Active Substance: FILGRASTIM
     Indication: PRODUCT USED FOR UNKNOWN INDICATION
     Dosage: 480 MILLIGRAM (DOSE FORM: 231)
     Route: 058
     Dates: start: 20171207, end: 20171211
  69. FILGRASTIM [Suspect]
     Active Substance: FILGRASTIM
     Dosage: 480 MILLIGRAM
     Route: 058
     Dates: start: 20171207, end: 20171211
  70. LETROZOLE. [Suspect]
     Active Substance: LETROZOLE
     Indication: BREAST CANCER METASTATIC
     Dosage: 20 MG, QD
     Route: 048
     Dates: start: 20180209, end: 20180608
  71. TAXOTERE [Suspect]
     Active Substance: DOCETAXEL
     Dosage: 148 MG, Q3W (CUMULATIVE DOSE TO FIRST REACTION: 2092.849 MG)
     Route: 042
     Dates: start: 20171106, end: 20180209
  72. AMITRIPTYLINE HYDROCHLORIDE. [Concomitant]
     Active Substance: AMITRIPTYLINE HYDROCHLORIDE
     Dosage: UNK (DOSAGE FORM: 245)
     Route: 048
  73. CHLORAMPHENICOL [Concomitant]
     Active Substance: CHLORAMPHENICOL
     Dosage: QD (DROP (1/12 MILLILITRE) (CUMULATIVE DOSE TO FIRST REACTION: 24 [DRP])
     Route: 047
     Dates: start: 20171129, end: 20171222
  74. CODEINE [Concomitant]
     Active Substance: CODEINE
     Indication: ANALGESIC THERAPY
     Dosage: 30 MG
     Route: 048
  75. CODEINE [Concomitant]
     Active Substance: CODEINE
     Indication: ANALGESIC THERAPY
     Dosage: 30 MG (DOSE FORM: 245)
     Route: 048
  76. CODEINE [Concomitant]
     Active Substance: CODEINE
     Dosage: UNK
  77. DEXAMETHASONE. [Concomitant]
     Active Substance: DEXAMETHASONE
     Dosage: 8 MG, QD
     Route: 048
     Dates: start: 20180118, end: 20180121
  78. DEXAMETHASONE. [Concomitant]
     Active Substance: DEXAMETHASONE
     Dosage: 8 MG, QD
     Route: 048
     Dates: start: 20180118, end: 20180121
  79. FLUCLOXACILLIN [Concomitant]
     Active Substance: FLUCLOXACILLIN
     Dosage: 1 G, QD
     Route: 048
     Dates: start: 20190222, end: 20190301
  80. FLUOROURACIL. [Concomitant]
     Active Substance: FLUOROURACIL
     Dosage: 2550 MG, QW (DOSE FORM: 245) (CUMULATIVE DOSE TO FIRST REACTION: 11094.74 MG)
     Route: 042
     Dates: start: 20180731, end: 20180925
  81. LORAZEPAM. [Concomitant]
     Active Substance: LORAZEPAM
     Dosage: UNK (DOSE FORM: 245)
     Route: 065
  82. METOCLOPRAMIDE. [Concomitant]
     Active Substance: METOCLOPRAMIDE
     Dosage: 30 UNK (DOSE FORM: 245)
     Route: 058
     Dates: start: 20191028
  83. NASEPTIN [Concomitant]
     Active Substance: CHLORHEXIDINE HYDROCHLORIDE\NEOMYCIN SULFATE
     Indication: RHINITIS
     Dosage: QD (DROP (1/12 MILLILITRE)
     Route: 047
     Dates: start: 20171129, end: 20171222
  84. OMEPRAZOLE. [Concomitant]
     Active Substance: OMEPRAZOLE
     Dosage: 80 MG, QD
     Route: 048
     Dates: start: 20191028
  85. OMEPRAZOLE. [Concomitant]
     Active Substance: OMEPRAZOLE
     Dosage: 40 MILLIGRAM
     Route: 048
     Dates: start: 20191028
  86. OXYCODONE [Concomitant]
     Active Substance: OXYCODONE
     Dosage: 5 MG
     Route: 048
     Dates: start: 20191028
  87. TRASTUZUMAB. [Suspect]
     Active Substance: TRASTUZUMAB
     Indication: BREAST CANCER
     Dosage: 630 MILLIGRAM, Q3WK (DOSE FORM: 230, 293)
     Route: 042
     Dates: start: 20171107, end: 20171107
  88. TRASTUZUMAB. [Suspect]
     Active Substance: TRASTUZUMAB
     Dosage: 441 MG, Q3W (DOSE FORM: 230) (CUMULATIVE DOSE TO FIRST REACTION: 6624.087 MG)
     Route: 042
     Dates: start: 20180404, end: 20191218
  89. TRASTUZUMAB. [Suspect]
     Active Substance: TRASTUZUMAB
     Dosage: 630 MG, Q3W (DOSE FORM: 230) (CUMULATIVE DOSE TO FIRST REACTION: 6624.087 MG)
     Route: 041
     Dates: start: 20171107, end: 20171107
  90. TAXOTERE [Suspect]
     Active Substance: DOCETAXEL
     Indication: BREAST CANCER
     Dosage: UNK
  91. ACICLOVIR [Concomitant]
     Active Substance: ACYCLOVIR
     Dosage: UNK
  92. CAPECITABINE. [Concomitant]
     Active Substance: CAPECITABINE
     Dosage: UNK
     Route: 048
  93. CHLORHEXIDINE [Concomitant]
     Active Substance: CHLORHEXIDINE
     Dosage: UNK
     Route: 065
  94. CISPLATIN. [Concomitant]
     Active Substance: CISPLATIN
     Indication: GASTRIC CANCER
     Dosage: 89 MG
     Route: 042
     Dates: start: 20180731, end: 20181218
  95. DEXAMETHASONE. [Concomitant]
     Active Substance: DEXAMETHASONE
     Dosage: 8 MG (4D)
     Route: 065
     Dates: start: 20171205, end: 20171208
  96. FLUCLOXACILLIN [Concomitant]
     Active Substance: FLUCLOXACILLIN
     Dosage: 4 GRAM, QD
     Route: 048
     Dates: start: 20190222, end: 20190301
  97. FLUCLOXACILLIN [Concomitant]
     Active Substance: FLUCLOXACILLIN
     Dosage: 4 GRAM, QD
     Route: 048
     Dates: start: 20190313, end: 20190320
  98. LOPERAMIDE [Concomitant]
     Active Substance: LOPERAMIDE
     Indication: DIARRHOEA
     Dosage: 2 MILLIGRAM
     Route: 048
     Dates: start: 20180611
  99. LORAZEPAM. [Concomitant]
     Active Substance: LORAZEPAM
     Dosage: 1 MG, PRN
     Route: 048
  100. METOCLOPRAMIDE. [Concomitant]
     Active Substance: METOCLOPRAMIDE
     Indication: ILLNESS
     Dosage: 10 MILLIGRAM (DOSE FORM: 245)
     Route: 042
     Dates: start: 20180119, end: 20180119
  101. METOCLOPRAMIDE. [Concomitant]
     Active Substance: METOCLOPRAMIDE
     Dosage: 10 MILLIGRAM (DOSE FORM: 245)
     Route: 048
     Dates: start: 20180611
  102. METOCLOPRAMIDE. [Concomitant]
     Active Substance: METOCLOPRAMIDE
     Dosage: 30 MG (DOSE FORM: 245)
     Route: 058
     Dates: start: 20191028
  103. NASEPTIN [Concomitant]
     Active Substance: CHLORHEXIDINE HYDROCHLORIDE\NEOMYCIN SULFATE
     Dosage: UNK UNK, QD
     Route: 045
     Dates: start: 20171129, end: 20171222
  104. PARACETAMOL [Concomitant]
     Active Substance: ACETAMINOPHEN
     Dosage: UNK
  105. RAMIPRIL. [Concomitant]
     Active Substance: RAMIPRIL
     Dosage: 2.5 MILLIGRAM, AS NECESSARY
     Route: 048
  106. SODIUM CHLORIDE. [Concomitant]
     Active Substance: SODIUM CHLORIDE
     Indication: PRODUCT USED FOR UNKNOWN INDICATION
     Dosage: 2000 MILLILITER, QD
     Route: 042
     Dates: start: 20180830, end: 20180830
  107. SODIUM CROMOGLICATE [Concomitant]
     Active Substance: CROMOLYN SODIUM
     Indication: EYE PAIN
     Dosage: EYE DROP
     Route: 047
  108. TRASTUZUMAB. [Suspect]
     Active Substance: TRASTUZUMAB
     Dosage: 472.5 MG, Q3W, (DOSE FORM: 230) (CUMULATIVE DOSE TO FIRST REACTION: 6624.087 MG)
     Route: 042
     Dates: start: 20171206, end: 20180404
  109. FILGRASTIM [Suspect]
     Active Substance: FILGRASTIM
     Dosage: 480 MICROGRAM, QD (DOSE FORM: 231)
     Route: 058
     Dates: start: 20180120, end: 20180124
  110. PERTUZUMAB. [Suspect]
     Active Substance: PERTUZUMAB
     Indication: BREAST CANCER METASTATIC
     Dosage: 840 MILLIGRAM, Q3WK (DOSE FORM: 230)
     Route: 042
     Dates: start: 20171107, end: 20171107
  111. ACICLOVIR [Concomitant]
     Active Substance: ACYCLOVIR
     Indication: ORAL HERPES
     Dosage: UNK, QD
     Route: 061
     Dates: start: 20171222, end: 20171222
  112. AMITRIPTYLINE [Concomitant]
     Active Substance: AMITRIPTYLINE
     Indication: NEUROPATHY PERIPHERAL
     Dosage: 10 MG, QD
     Route: 048
     Dates: start: 20180316
  113. CAPECITABINE. [Concomitant]
     Active Substance: CAPECITABINE
     Dosage: 1000 MG
     Route: 048
     Dates: start: 20180611, end: 20180731
  114. CAPECITABINE. [Concomitant]
     Active Substance: CAPECITABINE
     Dosage: UNK (DOSE FORM: 245)
     Route: 048
  115. CAPECITABINE. [Concomitant]
     Active Substance: CAPECITABINE
     Dosage: UNK (DOSE FORM: 245)
     Route: 065
  116. CHLORHEXIDINE [Concomitant]
     Active Substance: CHLORHEXIDINE
     Dosage: UNK
  117. CIPROFLOXACIN. [Concomitant]
     Active Substance: CIPROFLOXACIN
     Indication: INFECTION
     Dosage: 500 MILLIGRAM 0.5DAY
     Route: 048
     Dates: start: 20191028, end: 20191031
  118. CIPROFLOXACIN. [Concomitant]
     Active Substance: CIPROFLOXACIN
     Dosage: 1000 MG, QD
     Route: 048
     Dates: start: 20191028, end: 20191031
  119. DEXAMETHASONE. [Concomitant]
     Active Substance: DEXAMETHASONE
     Dosage: 8 MILLIGRAM, QD
     Route: 048
     Dates: start: 20171227, end: 20171230
  120. DEXAMETHASONE. [Concomitant]
     Active Substance: DEXAMETHASONE
     Dosage: 8 MG, QD (CUMULATIVE DOSE TO FIRST REACTION: 1967.6666 MG)
     Route: 048
     Dates: start: 20171227
  121. DEXAMETHASONE. [Concomitant]
     Active Substance: DEXAMETHASONE
     Dosage: 6.6 MG
     Route: 042
     Dates: start: 20180611, end: 20180611
  122. FLUCLOXACILLIN [Concomitant]
     Active Substance: FLUCLOXACILLIN
     Dosage: 1 GRAM, QD
     Route: 048
     Dates: start: 20190313, end: 20190320
  123. LANSOPRAZOLE. [Concomitant]
     Active Substance: LANSOPRAZOLE
     Indication: GASTRIC ULCER
     Dosage: 30 MG
     Route: 048
     Dates: start: 20180209
  124. LEVOMEPROMAZINE [Concomitant]
     Active Substance: LEVOMEPROMAZINE
     Dosage: 12.5 MG, QD
     Route: 058
     Dates: start: 20191028
  125. LEVOMEPROMAZINE [Concomitant]
     Active Substance: LEVOMEPROMAZINE
     Dosage: 6.25 MG
     Route: 058
     Dates: start: 20191028
  126. LORAZEPAM. [Concomitant]
     Active Substance: LORAZEPAM
     Dosage: UNK
  127. PARACETAMOL [Concomitant]
     Active Substance: ACETAMINOPHEN
     Dosage: 1 G, PRN
     Route: 048
     Dates: start: 20190219
  128. ZOPICLONE [Concomitant]
     Active Substance: ZOPICLONE
     Indication: SEDATION
     Dosage: 7.5 MG, QD (DOSE FORM: 245)
     Route: 048
  129. TRASTUZUMAB. [Suspect]
     Active Substance: TRASTUZUMAB
     Indication: BREAST CANCER METASTATIC
     Dosage: 472.5 MILLIGRAM, Q3WK (DOSE FORM: 230, 293)
     Route: 042
     Dates: start: 20171206, end: 20180404
  130. CHLORHEXIDINE [Concomitant]
     Active Substance: CHLORHEXIDINE
     Indication: PROPHYLAXIS
     Dosage: 10 MILLILITER
     Route: 048
     Dates: start: 20180611
  131. CODEINE [Concomitant]
     Active Substance: CODEINE
     Dosage: UNK (DOSAGE FORM: 245)
     Route: 065
  132. DEXAMETHASONE. [Concomitant]
     Active Substance: DEXAMETHASONE
     Indication: PRODUCT USED FOR UNKNOWN INDICATION
     Dosage: 8 MG, QD; 8 MILLIGRAM 4D
     Route: 048
     Dates: start: 20171205, end: 20171208
  133. FLUCLOXACILLIN [Concomitant]
     Active Substance: FLUCLOXACILLIN
     Dosage: 4 G, DAILY
     Route: 042
     Dates: start: 20190219, end: 20190221
  134. FLUCLOXACILLIN [Concomitant]
     Active Substance: FLUCLOXACILLIN
     Indication: PRODUCT USED FOR UNKNOWN INDICATION
     Dosage: 1 G (3D)
     Route: 042
     Dates: start: 20190219, end: 20190221
  135. FLUCLOXACILLIN [Concomitant]
     Active Substance: FLUCLOXACILLIN
     Dosage: 1 GRAM
     Route: 048
     Dates: start: 20190313, end: 20190320
  136. LANSOPRAZOLE. [Concomitant]
     Active Substance: LANSOPRAZOLE
     Dosage: UNK (DOSAGE FORM: 245)
     Route: 065
  137. NACL [Concomitant]
     Active Substance: SODIUM CHLORIDE
     Dosage: 2000 MILLILITER
     Route: 042
     Dates: start: 20180830, end: 20180830
  138. NASEPTIN [Concomitant]
     Active Substance: CHLORHEXIDINE HYDROCHLORIDE\NEOMYCIN SULFATE
     Dosage: UNK
     Route: 045
     Dates: start: 20171129, end: 20171222
  139. ONDANSETRON [Concomitant]
     Active Substance: ONDANSETRON
     Dosage: 4 MILLIGRAM, QD
     Route: 042
     Dates: start: 20180830, end: 20180830
  140. OXYCODONE [Concomitant]
     Active Substance: OXYCODONE
     Indication: PRODUCT USED FOR UNKNOWN INDICATION
     Dosage: 7.5 MG
     Route: 058
     Dates: start: 20191028
  141. PARACETAMOL [Concomitant]
     Active Substance: ACETAMINOPHEN
     Dosage: UNK
     Route: 065
  142. PARACETAMOL [Concomitant]
     Active Substance: ACETAMINOPHEN
     Dosage: UNK
     Route: 065
  143. RAMIPRIL. [Concomitant]
     Active Substance: RAMIPRIL
     Indication: PRODUCT USED FOR UNKNOWN INDICATION
     Dosage: 2.5 MG, QD
     Route: 048
  144. SODIUM CROMOGLYCATE [Concomitant]
     Active Substance: CROMOLYN SODIUM
     Dosage: EYE DROP
     Route: 047

REACTIONS (4)
  - Diarrhoea [Fatal]
  - Disease progression [Fatal]
  - Off label use [Fatal]
  - Vomiting [Fatal]

NARRATIVE: CASE EVENT DATE: 20180830
